FAERS Safety Report 10098914 (Version 1)
Quarter: 2014Q2

REPORT INFORMATION
  Report Type: Spontaneous
  Country: US (occurrence: None)
  Receive Date: 20140422
  Receipt Date: 20140422
  Transmission Date: 20141212
  Serious: No
  Sender: FDA-Public Use
  Company Number: None

PATIENT
  Age: 45 Year
  Sex: Male
  Weight: 92.99 kg

DRUGS (3)
  1. MINOCYCLINE [Suspect]
     Indication: ROSACEA
     Route: 048
     Dates: start: 20130303, end: 201304
  2. CENTRUM MULTIVITAMIN [Concomitant]
  3. ADVIL [Concomitant]

REACTIONS (2)
  - Tooth discolouration [None]
  - Feeling abnormal [None]
